FAERS Safety Report 8603541-6 (Version None)
Quarter: 2012Q3

REPORT INFORMATION
  Report Type: 
  Country: None (occurrence: None)
  Receive Date: 20120817
  Receipt Date: 20120813
  Transmission Date: 20120928
  Serious: Yes (Other)
  Sender: FDA-Public Use
  Company Number: CA-ROCHE-1068288

PATIENT
  Sex: Male
  Weight: 79.45 kg

DRUGS (5)
  1. AVASTIN [Suspect]
     Dates: start: 20120626
  2. CRESTOR [Concomitant]
  3. AVASTIN [Suspect]
     Dates: start: 20120529
  4. AVASTIN [Suspect]
     Indication: GLIOBLASTOMA
     Route: 042
     Dates: start: 20111129
  5. AVASTIN [Suspect]
     Route: 042
     Dates: start: 20120515

REACTIONS (8)
  - COUGH [None]
  - MOVEMENT DISORDER [None]
  - HEART RATE DECREASED [None]
  - GAIT DISTURBANCE [None]
  - EPISTAXIS [None]
  - NEOPLASM [None]
  - BALANCE DISORDER [None]
  - APHASIA [None]
